FAERS Safety Report 5718516-4 (Version None)
Quarter: 2008Q2

REPORT INFORMATION
  Report Type: 
  Country: None (occurrence: None)
  Receive Date: 20080425
  Receipt Date: 20080414
  Transmission Date: 20081010
  Serious: Yes (Life-Threatening, Hospitalization)
  Sender: FDA-Public Use
  Company Number: FR-GENENTECH-259700

PATIENT
  Sex: Male

DRUGS (6)
  1. RITUXIMAB [Suspect]
     Indication: NON-HODGKIN'S LYMPHOMA
     Dosage: 620 MG, QD
     Route: 042
     Dates: start: 20080305
  2. BLEOMYCIN SULFATE [Suspect]
     Indication: NON-HODGKIN'S LYMPHOMA
     Dosage: 10 MG, QD
     Route: 042
     Dates: start: 20080305
  3. CYCLOPHOSPHAMIDE [Suspect]
     Indication: NON-HODGKIN'S LYMPHOMA
     Dosage: 1960 MG, QD
     Route: 042
     Dates: start: 20080305
  4. DOXORUBICIN HCL [Suspect]
     Indication: NON-HODGKIN'S LYMPHOMA
     Dosage: 124 MG, QD
     Route: 042
     Dates: start: 20080305
  5. VINDESINE [Suspect]
     Indication: NON-HODGKIN'S LYMPHOMA
     Dosage: 3.3 MG, QD
     Route: 042
     Dates: start: 20080305
  6. PREDNISONE [Suspect]
     Indication: NON-HODGKIN'S LYMPHOMA
     Dosage: 100 MG, QD
     Route: 048
     Dates: start: 20080305

REACTIONS (1)
  - PNEUMOCYSTIS JIROVECI PNEUMONIA [None]
